FAERS Safety Report 11455705 (Version 1)
Quarter: 2015Q3

REPORT INFORMATION
  Report Type: Spontaneous
  Country: US (occurrence: US)
  Receive Date: 20150903
  Receipt Date: 20150903
  Transmission Date: 20151125
  Serious: No
  Sender: FDA-Public Use
  Company Number: US-BEH-2015052134

PATIENT
  Age: 54 Year
  Sex: Female
  Weight: 72 kg

DRUGS (30)
  1. DILTIAZEM HCL [Concomitant]
     Active Substance: DILTIAZEM HYDROCHLORIDE
  2. FLONASE [Concomitant]
     Active Substance: FLUTICASONE PROPIONATE
  3. XOPENEX [Concomitant]
     Active Substance: LEVALBUTEROL HYDROCHLORIDE
  4. ALBUTEROL. [Concomitant]
     Active Substance: ALBUTEROL
  5. SPIRIVA [Concomitant]
     Active Substance: TIOTROPIUM BROMIDE MONOHYDRATE
  6. SINGULAIR [Concomitant]
     Active Substance: MONTELUKAST SODIUM
  7. MEDROL [Concomitant]
     Active Substance: METHYLPREDNISOLONE
  8. MELATONIN [Concomitant]
     Active Substance: MELATONIN
  9. SB CLOTRIMAZOLE [Concomitant]
  10. XANAX [Concomitant]
     Active Substance: ALPRAZOLAM
  11. LEVAQUIN [Concomitant]
     Active Substance: LEVOFLOXACIN
  12. DALIRESP [Concomitant]
     Active Substance: ROFLUMILAST
  13. OXYGEN. [Concomitant]
     Active Substance: OXYGEN
  14. CVS MAGNESIUM [Concomitant]
  15. FLAXSEED [Concomitant]
     Active Substance: FLAX SEED
  16. LIDOCAINE. [Concomitant]
     Active Substance: LIDOCAINE
  17. SODIUM CHLORIDE. [Concomitant]
     Active Substance: SODIUM CHLORIDE
  18. ZYRTEC [Concomitant]
     Active Substance: CETIRIZINE HYDROCHLORIDE
  19. ACETYLCYSTEINE. [Concomitant]
     Active Substance: ACETYLCYSTEINE
  20. PREDNISONE. [Concomitant]
     Active Substance: PREDNISONE
  21. MARINOL [Concomitant]
     Active Substance: DRONABINOL
  22. ASPIRIN. [Concomitant]
     Active Substance: ASPIRIN
  23. EPIPEN [Concomitant]
     Active Substance: EPINEPHRINE
  24. CLARITIN [Concomitant]
     Active Substance: LORATADINE
  25. ASMANEX [Concomitant]
     Active Substance: MOMETASONE FUROATE
  26. ZOLOFT [Concomitant]
     Active Substance: SERTRALINE HYDROCHLORIDE
  27. ZEMAIRA [Suspect]
     Active Substance: .ALPHA.1-PROTEINASE INHIBITOR HUMAN
     Indication: ALPHA-1 ANTI-TRYPSIN DEFICIENCY
     Route: 042
     Dates: start: 20150625
  28. DIPHENHYDRAMINE. [Concomitant]
     Active Substance: DIPHENHYDRAMINE
  29. FOLIC ACID. [Concomitant]
     Active Substance: FOLIC ACID
  30. CALCIUM VITAMIN D [Concomitant]
     Active Substance: CALCIUM\VITAMIN D

REACTIONS (5)
  - Swelling face [Unknown]
  - Vomiting [Unknown]
  - Headache [Unknown]
  - Nausea [Unknown]
  - Diarrhoea [Unknown]

NARRATIVE: CASE EVENT DATE: 20150626
